FAERS Safety Report 15623041 (Version 1)
Quarter: 2018Q4

REPORT INFORMATION
  Report Type: Spontaneous
  Country: US (occurrence: US)
  Receive Date: 20181115
  Receipt Date: 20181115
  Transmission Date: 20190205
  Serious: No
  Sender: FDA-Public Use
  Company Number: US-PFIZER INC-2018460902

PATIENT
  Age: 57 Year
  Sex: Female
  Weight: 141 kg

DRUGS (2)
  1. NEURONTIN [Suspect]
     Active Substance: GABAPENTIN
     Dosage: UNK (THEN WENT UP HIGHER AND HIGHER)
  2. NEURONTIN [Suspect]
     Active Substance: GABAPENTIN
     Indication: PAIN
     Dosage: UNK (DOSE STARTED LOW)

REACTIONS (1)
  - Drug ineffective for unapproved indication [Unknown]
